FAERS Safety Report 6829710-3 (Version None)
Quarter: 2010Q3

REPORT INFORMATION
  Report Type: 
  Country: None (occurrence: None)
  Receive Date: 20100709
  Receipt Date: 20070619
  Transmission Date: 20110219
  Serious: No
  Sender: FDA-Public Use
  Company Number: US-PFIZER INC-2007010650

PATIENT
  Sex: Female

DRUGS (5)
  1. CHANTIX [Interacting]
     Indication: SMOKING CESSATION THERAPY
     Route: 048
     Dates: start: 20060907, end: 20061020
  2. PROBENECID [Interacting]
     Indication: GOUT
     Dates: start: 20061018
  3. PROBENECID + COLCHICINE [Suspect]
     Indication: GOUT
     Dosage: 0.5/500MG; 1/1000MG,BID: EVERY DAY
     Dates: start: 20061018
  4. COLCHICINE [Concomitant]
     Indication: GOUT
     Dates: start: 20060830
  5. LEXAPRO [Concomitant]
     Route: 048
     Dates: start: 20060203

REACTIONS (2)
  - DRUG INTERACTION [None]
  - NAUSEA [None]
